FAERS Safety Report 6093793-1 (Version None)
Quarter: 2009Q1

REPORT INFORMATION
  Report Type: 
  Country: None (occurrence: None)
  Receive Date: 20090226
  Receipt Date: 20090217
  Transmission Date: 20090719
  Serious: Yes (Hospitalization, Other)
  Sender: FDA-Public Use
  Company Number: US-ABBOTT-09P-163-0558134-00

PATIENT
  Sex: Male
  Weight: 83.99 kg

DRUGS (14)
  1. NIASPAN [Suspect]
     Indication: BLOOD CHOLESTEROL INCREASED
     Dates: start: 20081201, end: 20090214
  2. NIASPAN [Suspect]
     Dates: start: 20090215
  3. ASPIRIN [Concomitant]
     Indication: DRUG THERAPY
     Dates: start: 20081001
  4. GLIMEPIRIDE [Concomitant]
     Indication: DIABETES MELLITUS
  5. FLUOXETINE [Concomitant]
     Indication: DRUG USE FOR UNKNOWN INDICATION
  6. AVAPRO [Concomitant]
     Indication: ATRIOVENTRICULAR BLOCK
     Dates: start: 20081001
  7. PLAVIX [Concomitant]
     Indication: STENT PLACEMENT
     Dates: start: 20081001
  8. WARFARIN [Concomitant]
     Indication: STENT PLACEMENT
     Dosage: ON HOLD FOR DEFIBRILLATOR PLACEMENT
     Dates: start: 20081001, end: 20090212
  9. WARFARIN [Concomitant]
     Dates: start: 20090215
  10. COREG [Concomitant]
     Indication: ATRIOVENTRICULAR BLOCK
     Dates: start: 20081001
  11. XALATAN [Concomitant]
     Indication: GLAUCOMA
     Route: 047
  12. DARVOCET [Concomitant]
     Indication: ARTHRITIS
  13. DARVOCET [Concomitant]
     Indication: HEADACHE
  14. NITROGLYCERIN [Concomitant]
     Indication: CHEST PAIN
     Route: 060
     Dates: start: 20081001

REACTIONS (7)
  - CORONARY ARTERY EMBOLISM [None]
  - EJECTION FRACTION DECREASED [None]
  - FLUSHING [None]
  - PNEUMONIA [None]
  - PRURITUS [None]
  - PULMONARY OEDEMA [None]
  - SKIN BURNING SENSATION [None]
